FAERS Safety Report 11966709 (Version 1)
Quarter: 2016Q1

REPORT INFORMATION
  Report Type: Spontaneous
  Country: FR (occurrence: FR)
  Receive Date: 20160127
  Receipt Date: 20160127
  Transmission Date: 20160526
  Serious: Yes (Death, Life-Threatening, Hospitalization)
  Sender: FDA-Public Use
  Company Number: FR-SA-2016SA013259

PATIENT
  Age: 68 Year
  Sex: Male
  Weight: 50 kg

DRUGS (9)
  1. CORDARONE [Suspect]
     Active Substance: AMIODARONE HYDROCHLORIDE
     Route: 048
  2. CORTANCYL [Suspect]
     Active Substance: PREDNISONE
     Route: 048
  3. VIREAD [Suspect]
     Active Substance: TENOFOVIR DISOPROXIL FUMARATE
     Route: 048
  4. TAHOR [Suspect]
     Active Substance: ATORVASTATIN CALCIUM
     Route: 048
  5. NEBILOX [Suspect]
     Active Substance: NEBIVOLOL HYDROCHLORIDE
     Route: 048
  6. PLAVIX [Suspect]
     Active Substance: CLOPIDOGREL BISULFATE
     Route: 048
  7. INEXIUM [Suspect]
     Active Substance: ESOMEPRAZOLE
     Route: 048
  8. CELLCEPT [Suspect]
     Active Substance: MYCOPHENOLATE MOFETIL\MYCOPHENOLATE MOFETIL HYDROCHLORIDE
     Route: 048
  9. HARVONI [Suspect]
     Active Substance: LEDIPASVIR\SOFOSBUVIR
     Dosage: SOFOSBUVIR 400 MG+ LEDIPASVIR 90 MG
     Route: 048
     Dates: start: 20150924

REACTIONS (4)
  - Seizure [Fatal]
  - Dizziness [Not Recovered/Not Resolved]
  - Cardio-respiratory arrest [Fatal]
  - Cerebellar syndrome [Not Recovered/Not Resolved]

NARRATIVE: CASE EVENT DATE: 20151214
